FAERS Safety Report 9439039 (Version 3)
Quarter: 2013Q3

REPORT INFORMATION
  Report Type: Spontaneous
  Country: US (occurrence: US)
  Receive Date: 20130802
  Receipt Date: 20130830
  Transmission Date: 20140515
  Serious: Yes (Life-Threatening, Hospitalization, Other)
  Sender: FDA-Public Use
  Company Number: US-AMGEN-USASP2013052357

PATIENT
  Age: 13 Year
  Sex: Female
  Weight: 39 kg

DRUGS (11)
  1. NPLATE [Suspect]
     Indication: IMMUNE THROMBOCYTOPENIC PURPURA
     Dosage: 10 MG/KG/DOSE, QWK
     Route: 058
     Dates: start: 20130113, end: 20130709
  2. CORTICOSTEROIDS [Concomitant]
     Indication: IMMUNE THROMBOCYTOPENIC PURPURA
  3. IMMUNOGLOBULINS [Concomitant]
     Indication: IMMUNE THROMBOCYTOPENIC PURPURA
  4. DAPSONE [Concomitant]
     Indication: IMMUNE THROMBOCYTOPENIC PURPURA
  5. MERCAPTOPURINE [Concomitant]
     Indication: IMMUNE THROMBOCYTOPENIC PURPURA
  6. MORPHINE [Concomitant]
     Indication: PAIN
     Dosage: 2 MG, Q24H
     Route: 042
  7. TRANEXAMIC ACID [Concomitant]
     Indication: HAEMORRHAGE
     Dosage: 350 MG,Q8H
     Route: 042
  8. CASPOFUNGIN [Concomitant]
     Indication: INFECTION
     Dosage: 50 MG, QD
     Route: 042
  9. VANCOMYCIN [Concomitant]
     Indication: INFECTION
     Dosage: 600 MG, Q8H
     Route: 042
  10. BACTRIM [Concomitant]
     Indication: INFECTION
     Dosage: 160/80 MG, QD
     Route: 048
  11. CIPRO                              /00697201/ [Concomitant]
     Indication: INFECTION
     Dosage: 80 MG, QD
     Route: 042

REACTIONS (4)
  - Pulmonary haemorrhage [Recovered/Resolved]
  - Therapeutic response decreased [Not Recovered/Not Resolved]
  - Epistaxis [Not Recovered/Not Resolved]
  - Platelet count decreased [Not Recovered/Not Resolved]
